FAERS Safety Report 9370147 (Version 1)
Quarter: 2013Q2

REPORT INFORMATION
  Report Type: Spontaneous
  Country: US (occurrence: None)
  Receive Date: 20130624
  Receipt Date: 20130624
  Transmission Date: 20140414
  Serious: Yes (Other)
  Sender: FDA-Public Use
  Company Number: 2013P1008601

PATIENT
  Age: 15 Year
  Sex: Male

DRUGS (1)
  1. MYORISAN 40 MG [Suspect]
     Dates: start: 20130503

REACTIONS (2)
  - Mood altered [None]
  - Anger [None]
